FAERS Safety Report 6150548-7 (Version None)
Quarter: 2009Q2

REPORT INFORMATION
  Report Type: 
  Country: None (occurrence: None)
  Receive Date: 20090409
  Receipt Date: 20090327
  Transmission Date: 20091009
  Serious: Yes (Death, Other)
  Sender: FDA-Public Use
  Company Number: JP-MEDIMMUNE-MEDI-0008067

PATIENT
  Sex: Female
  Weight: 4.5 kg

DRUGS (15)
  1. SYNAGIS [Suspect]
     Indication: RESPIRATORY SYNCYTIAL VIRUS INFECTION
     Route: 030
     Dates: start: 20080926, end: 20080926
  2. FREEZE-DRIED SULFONATED HUMAN NORMAL IMMUNOGLOBULIN [Suspect]
     Indication: INFECTION
     Route: 042
     Dates: start: 20080927, end: 20080927
  3. SPIRONOLACTONE [Concomitant]
     Indication: POLYURIA
     Route: 048
     Dates: start: 20071130, end: 20080927
  4. AMBROXOL [Concomitant]
     Indication: PRODUCTIVE COUGH
     Route: 048
     Dates: start: 20080314, end: 20080927
  5. FUROSEMIDE [Concomitant]
     Indication: POLYURIA
     Route: 048
     Dates: start: 20071130, end: 20080927
  6. CARBOCISTEINE [Concomitant]
     Indication: PRODUCTIVE COUGH
     Route: 048
     Dates: start: 20080314, end: 20080927
  7. TILACTASE [Concomitant]
     Route: 048
     Dates: start: 20080412, end: 20080927
  8. FAMOTIDINE [Concomitant]
     Route: 048
     Dates: start: 20080417, end: 20080927
  9. ERYTHROMYCIN [Concomitant]
     Route: 048
     Dates: start: 20080513, end: 20080927
  10. ANTIBIOTICS-RESISTANT LACTIC ACID BACTERIAE [Concomitant]
     Route: 048
     Dates: start: 20080703, end: 20080927
  11. EPINASTINE HYDROCHLORIDE [Concomitant]
     Indication: HYPERSENSITIVITY
     Route: 048
     Dates: start: 20080802, end: 20080927
  12. FERRIC PYROPHOSPHATE [Concomitant]
     Indication: ANAEMIA
     Route: 048
     Dates: start: 20080812, end: 20080927
  13. AMPICILLIN AND SULBACTAM [Concomitant]
     Indication: BACTERIAL INFECTION
     Route: 042
     Dates: start: 20080924, end: 20080927
  14. PREDNISOLONE SODIUM SUCCINATE INJ [Concomitant]
     Indication: RESPIRATORY SYNCYTIAL VIRUS INFECTION
     Route: 042
     Dates: start: 20080924, end: 20080927
  15. PRANLUKAST [Concomitant]
     Indication: HYPERSENSITIVITY
     Route: 048
     Dates: start: 20080926, end: 20080927

REACTIONS (8)
  - BODY TEMPERATURE INCREASED [None]
  - BRONCHOPNEUMONIA [None]
  - CARDIO-RESPIRATORY ARREST [None]
  - DISSEMINATED INTRAVASCULAR COAGULATION [None]
  - HISTIOCYTOSIS HAEMATOPHAGIC [None]
  - INTERSTITIAL LUNG DISEASE [None]
  - RESPIRATORY DISORDER [None]
  - RESPIRATORY SYNCYTIAL VIRUS INFECTION [None]
